FAERS Safety Report 8775470 (Version 2)
Quarter: 2012Q4

REPORT INFORMATION
  Report Type: 
  Country: JP (occurrence: JP)
  Receive Date: 20120910
  Receipt Date: 20120917
  Transmission Date: 20130627
  Serious: Yes (Other)
  Sender: FDA-Public Use
  Company Number: JP-EISAI INC-E2020-11285-SPO-JP

PATIENT
  Age: 65 Year

DRUGS (3)
  1. ARICEPT [Suspect]
     Indication: DEMENTIA
     Dosage: unknown
     Route: 048
  2. ARICEPT [Suspect]
     Route: 048
  3. DOGMATYL [Concomitant]
     Dosage: unknown
     Route: 048

REACTIONS (2)
  - Brain oedema [Unknown]
  - Neoplasm malignant [Unknown]
